FAERS Safety Report 11655023 (Version 1)
Quarter: 2015Q4

REPORT INFORMATION
  Report Type: Spontaneous
  Country: US (occurrence: US)
  Receive Date: 20151023
  Receipt Date: 20151023
  Transmission Date: 20160304
  Serious: Yes (Other)
  Sender: FDA-Public Use
  Company Number: US-ACTAVIS-2015-22862

PATIENT
  Age: 15 Year
  Sex: Male
  Weight: 51.8 kg

DRUGS (3)
  1. BUDESONIDE (WATSON LABORATORIES) [Suspect]
     Active Substance: BUDESONIDE
     Indication: PROTEIN-LOSING GASTROENTEROPATHY
     Dosage: HIGHEST DOSE, 6 MG ON ALTERNATE DAYS
     Route: 048
  2. FLUTICASONE W/SALMETEROL [Concomitant]
     Active Substance: FLUTICASONE PROPIONATE\SALMETEROL XINAFOATE
     Indication: BRONCHIECTASIS
     Dosage: UNK
     Route: 055
  3. ITRACONAZOLE (UNKNOWN) [Interacting]
     Active Substance: ITRACONAZOLE
     Indication: HISTOPLASMOSIS DISSEMINATED
     Dosage: 400 MG, DAILY
     Route: 065

REACTIONS (2)
  - Drug interaction [Recovered/Resolved]
  - Cushing^s syndrome [Recovered/Resolved]
